FAERS Safety Report 5304943-6 (Version None)
Quarter: 2007Q2

REPORT INFORMATION
  Report Type: 
  Country: None (occurrence: None)
  Receive Date: 20070423
  Receipt Date: 20070411
  Transmission Date: 20071010
  Serious: Yes (Hospitalization, Other)
  Sender: FDA-Public Use
  Company Number: US-SHR-US-2007-013210

PATIENT
  Age: 66 Year
  Sex: Female

DRUGS (3)
  1. LEUKINE [Suspect]
     Route: 058
     Dates: start: 20060306
  2. PROCRIT [Concomitant]
     Route: 058
  3. CARBOPLATIN [Concomitant]
     Dosage: 580 UNK, UNK
     Route: 042
     Dates: start: 20061018

REACTIONS (2)
  - PLATELET COUNT DECREASED [None]
  - TRANSFUSION REACTION [None]
